FAERS Safety Report 4370097-6 (Version None)
Quarter: 2004Q2

REPORT INFORMATION
  Report Type: 
  Country: None (occurrence: None)
  Receive Date: 20040527
  Receipt Date: 20040514
  Transmission Date: 20050107
  Serious: Yes (Hospitalization)
  Sender: FDA-Public Use
  Company Number: SE-JNJFOC-20040503471

PATIENT
  Age: 59 Year
  Sex: Female

DRUGS (2)
  1. REMINYL [Suspect]
     Indication: DEMENTIA ALZHEIMER'S TYPE
     Dosage: 8 MG, IN 1 DAY, ORAL; 16 MG, IN 1 DAY, ORAL
     Route: 048
     Dates: start: 20030225, end: 20030301
  2. REMINYL [Suspect]
     Indication: DEMENTIA ALZHEIMER'S TYPE
     Dosage: 8 MG, IN 1 DAY, ORAL; 16 MG, IN 1 DAY, ORAL
     Route: 048
     Dates: start: 20030301

REACTIONS (2)
  - BLOOD PRESSURE SYSTOLIC INCREASED [None]
  - SICK SINUS SYNDROME [None]
